FAERS Safety Report 21179905 (Version 1)
Quarter: 2022Q3

REPORT INFORMATION
  Report Type: Spontaneous
  Country: US (occurrence: None)
  Receive Date: 20220805
  Receipt Date: 20220805
  Transmission Date: 20221027
  Serious: Yes (Other)
  Sender: FDA-Public Use
  Company Number: None

PATIENT
  Age: 17 Year
  Sex: Male
  Weight: 72 kg

DRUGS (3)
  1. NORDITROPIN [Suspect]
     Active Substance: SOMATROPIN
     Indication: Blood growth hormone
     Dosage: FREQUENCY : DAILY;?
     Route: 058
     Dates: start: 20220525, end: 20220802
  2. CREATINE [Concomitant]
     Active Substance: CREATINE
  3. Protein powder [Concomitant]

REACTIONS (3)
  - Swelling face [None]
  - Rash pruritic [None]
  - Chest discomfort [None]

NARRATIVE: CASE EVENT DATE: 20220802
